FAERS Safety Report 4885944-9 (Version None)
Quarter: 2006Q1

REPORT INFORMATION
  Report Type: 
  Country: None (occurrence: None)
  Receive Date: 20060118
  Receipt Date: 20060103
  Transmission Date: 20060701
  Serious: Yes (Other)
  Sender: FDA-Public Use
  Company Number: US200601000431

PATIENT
  Age: 79 Year
  Sex: Male

DRUGS (9)
  1. HUMALOG [Suspect]
     Dates: start: 19910101
  2. LOPRESSOR [Concomitant]
  3. SYNTHROID [Concomitant]
  4. PLAVIX [Concomitant]
  5. ISOSORBIDE (ISOSORBIDE) [Concomitant]
  6. FISH OIL (FISH OIL) [Concomitant]
  7. ASPIRIN [Concomitant]
  8. NIASPAN [Concomitant]
  9. AVAPRO [Concomitant]

REACTIONS (5)
  - BLOOD GLUCOSE INCREASED [None]
  - CORONARY ARTERY OCCLUSION [None]
  - DIABETES MELLITUS INADEQUATE CONTROL [None]
  - DRUG INEFFECTIVE [None]
  - PHARMACEUTICAL PRODUCT COMPLAINT [None]
